FAERS Safety Report 8326821-0 (Version None)
Quarter: 2012Q2

REPORT INFORMATION
  Report Type: 
  Country: None (occurrence: None)
  Receive Date: 20120501
  Receipt Date: 20120419
  Transmission Date: 20120825
  Serious: Yes (Death, Other)
  Sender: FDA-Public Use
  Company Number: NL-CELGENEUS-114-50794-12022523

PATIENT
  Sex: Male

DRUGS (5)
  1. VIDAZA [Suspect]
     Dosage: 52.5 MILLIGRAM/SQ. METER
     Route: 065
  2. VIDAZA [Suspect]
     Dosage: 75 MILLIGRAM/SQ. METER
     Route: 065
  3. VIDAZA [Suspect]
     Dosage: 75 MILLIGRAM/SQ. METER
     Route: 065
  4. VIDAZA [Suspect]
     Route: 058
     Dates: end: 20120101
  5. VIDAZA [Suspect]
     Dosage: 75 MILLIGRAM/SQ. METER
     Route: 065

REACTIONS (7)
  - BLOOD PRODUCT TRANSFUSION DEPENDENT [None]
  - ACUTE MYELOID LEUKAEMIA [None]
  - FEBRILE NEUTROPENIA [None]
  - INJECTION SITE IRRITATION [None]
  - DEATH [None]
  - MENTAL DISORDER [None]
  - MYELODYSPLASTIC SYNDROME TRANSFORMATION [None]
